FAERS Safety Report 7388505-5 (Version None)
Quarter: 2011Q2

REPORT INFORMATION
  Report Type: 
  Country: None (occurrence: None)
  Receive Date: 20110401
  Receipt Date: 20110330
  Transmission Date: 20111010
  Serious: Yes (Death, Other)
  Sender: FDA-Public Use
  Company Number: PHHY2010CA54407

PATIENT
  Sex: Female

DRUGS (1)
  1. SANDOSTATIN LAR [Suspect]
     Indication: PANCREATICODUODENECTOMY
     Dosage: 30 MG, QMO
     Route: 030
     Dates: start: 20100813

REACTIONS (3)
  - DEATH [None]
  - BLOOD PRESSURE DECREASED [None]
  - DIARRHOEA [None]
